FAERS Safety Report 8486187-2 (Version None)
Quarter: 2012Q3

REPORT INFORMATION
  Report Type: 
  Country: None (occurrence: None)
  Receive Date: 20120703
  Receipt Date: 20120627
  Transmission Date: 20120928
  Serious: Yes (Hospitalization)
  Sender: FDA-Public Use
  Company Number: US-FRI-1000029875

PATIENT
  Sex: Female

DRUGS (9)
  1. REMERON [Concomitant]
  2. VITAMIN B COMPLEX CAP [Concomitant]
  3. MAGNESIUM SULFATE [Concomitant]
  4. CRANBERRY SUPPLEMENT [Concomitant]
  5. EFFEXOR [Concomitant]
     Indication: DEPRESSION
     Dosage: 150 MG
     Dates: start: 20101101
  6. ASCORBIC ACID [Concomitant]
  7. VITAMIN D [Concomitant]
  8. VIIBRYD [Suspect]
     Indication: DEPRESSION
     Dosage: 10 MG
     Dates: start: 20120316, end: 20120301
  9. LOVAZA [Concomitant]

REACTIONS (2)
  - SUICIDE ATTEMPT [None]
  - ROAD TRAFFIC ACCIDENT [None]
